FAERS Safety Report 5193805-3 (Version None)
Quarter: 2006Q4

REPORT INFORMATION
  Report Type: 
  Country: None (occurrence: None)
  Receive Date: 20061221
  Receipt Date: 20061212
  Transmission Date: 20070319
  Serious: Yes (Other)
  Sender: FDA-Public Use
  Company Number: 3658

PATIENT
  Age: 17 Year
  Sex: Female

DRUGS (2)
  1. CLARAVIS (ISOTRETINOIN), 40 MG CAPSULES [Suspect]
     Dosage: 80 MG, QD, PO
     Route: 048
     Dates: start: 20061001
  2. AMNESTEEM [Suspect]
     Dosage: 80 MG, QD, PO
     Route: 048
     Dates: start: 20061101, end: 20061128

REACTIONS (5)
  - ALANINE AMINOTRANSFERASE INCREASED [None]
  - ALCOHOL POISONING [None]
  - ASPARTATE AMINOTRANSFERASE INCREASED [None]
  - CONCUSSION [None]
  - DRUG INTERACTION [None]
